FAERS Safety Report 5515158-0 (Version None)
Quarter: 2007Q4

REPORT INFORMATION
  Report Type: 
  Country: None (occurrence: None)
  Receive Date: 20071113
  Receipt Date: 20070123
  Transmission Date: 20080405
  Serious: No
  Sender: FDA-Public Use
  Company Number: A0636705A

PATIENT
  Sex: Male

DRUGS (13)
  1. COREG [Suspect]
     Dosage: 12.5MG TWICE PER DAY
     Route: 048
     Dates: start: 20050601
  2. NEURONTIN [Concomitant]
  3. ADVAIR DISKUS 100/50 [Concomitant]
  4. EFFEXOR XR [Concomitant]
  5. LIPITOR [Concomitant]
  6. VITAMIN [Concomitant]
  7. NIASPAN [Concomitant]
  8. PLAVIX [Concomitant]
  9. OXYCODONE HCL [Concomitant]
  10. PROTONIX [Concomitant]
  11. ASPIRIN [Concomitant]
  12. NITROGLYCERIN [Concomitant]
  13. SPIRIVA [Concomitant]

REACTIONS (1)
  - BRONCHITIS [None]
